FAERS Safety Report 24546545 (Version 1)
Quarter: 2024Q4

REPORT INFORMATION
  Report Type: Spontaneous
  Country: FR (occurrence: FR)
  Receive Date: 20241024
  Receipt Date: 20241024
  Transmission Date: 20250115
  Serious: Yes (Death)
  Sender: TEVA
  Company Number: None

PATIENT
  Age: 79 Year
  Sex: Male
  Weight: 57 kg

DRUGS (1)
  1. CLOZAPINE [Suspect]
     Active Substance: CLOZAPINE
     Indication: Parkinson^s disease
     Route: 048

REACTIONS (5)
  - Extrapyramidal disorder [Fatal]
  - Hypothermia [Fatal]
  - Pneumonia aspiration [Fatal]
  - Intentional misuse of drug delivery system [Fatal]
  - Confusional state [Fatal]

NARRATIVE: CASE EVENT DATE: 20240917
